FAERS Safety Report 20064093 (Version 1)
Quarter: 2021Q4

REPORT INFORMATION
  Report Type: Spontaneous
  Country: ES (occurrence: ES)
  Receive Date: 20211112
  Receipt Date: 20211112
  Transmission Date: 20220304
  Serious: Yes (Other)
  Sender: FDA-Public Use
  Company Number: ES-OTSUKA-2017_022079

PATIENT
  Age: 56 Year
  Sex: Female

DRUGS (1)
  1. ABILIFY MAINTENA [Suspect]
     Active Substance: ARIPIPRAZOLE
     Indication: Product used for unknown indication
     Dosage: 300 MG, UNK
     Route: 065

REACTIONS (7)
  - Depressed level of consciousness [Unknown]
  - Psychomotor retardation [Unknown]
  - Disorientation [Unknown]
  - Mental disorder [Unknown]
  - Parkinsonian gait [Unknown]
  - Muscle rigidity [Unknown]
  - Prescribed underdose [Unknown]
